FAERS Safety Report 6883171-7 (Version None)
Quarter: 2010Q3

REPORT INFORMATION
  Report Type: 
  Country: None (occurrence: None)
  Receive Date: 20100727
  Receipt Date: 20070712
  Transmission Date: 20110219
  Serious: Yes (Hospitalization)
  Sender: FDA-Public Use
  Company Number: US-PFIZER INC-2006114191

PATIENT
  Sex: Male
  Weight: 104.3 kg

DRUGS (10)
  1. CELEBREX [Suspect]
     Indication: RHEUMATOID ARTHRITIS
     Dates: start: 20001201, end: 20011031
  2. VIOXX [Suspect]
     Indication: RHEUMATOID ARTHRITIS
     Dates: start: 19990601, end: 20010101
  3. FEXOFENADINE [Concomitant]
  4. ASPIRIN [Concomitant]
  5. AUGMENTIN '125' [Concomitant]
  6. BACLOFEN [Concomitant]
  7. IBUPROFEN TABLETS [Concomitant]
  8. METOCLOPRAMIDE [Concomitant]
  9. PREVACID [Concomitant]
  10. ULTRAM [Concomitant]

REACTIONS (1)
  - CEREBROVASCULAR ACCIDENT [None]
